FAERS Safety Report 4447409-8 (Version None)
Quarter: 2004Q3

REPORT INFORMATION
  Report Type: 
  Country: None (occurrence: None)
  Receive Date: 20040823
  Receipt Date: 20040719
  Transmission Date: 20050211
  Serious: No
  Sender: FDA-Public Use
  Company Number: PHEH2004US07951

PATIENT
  Age: 89 Year
  Sex: Female
  Weight: 49.9 kg

DRUGS (8)
  1. ZELNORM [Suspect]
     Indication: IRRITABLE BOWEL SYNDROME
     Dosage: 6 MG ORAL
     Route: 048
     Dates: start: 20030701
  2. LEVOXYL [Concomitant]
  3. PAXIL [Concomitant]
  4. DURAGESIC [Concomitant]
  5. DIAZEPAM [Concomitant]
  6. ZESTRIL (LISOPRIL) [Concomitant]
  7. HYDROCODONE (HYDROCODONE) [Concomitant]
  8. PREMARIN [Concomitant]

REACTIONS (2)
  - DIARRHOEA [None]
  - VOMITING [None]
